FAERS Safety Report 19740079 (Version 3)
Quarter: 2021Q4

REPORT INFORMATION
  Report Type: Other
  Country: KR (occurrence: KR)
  Receive Date: 20210823
  Receipt Date: 20211020
  Transmission Date: 20220304
  Serious: Yes (Hospitalization, Other)
  Sender: FDA-Public Use
  Company Number: KR-ROCHE-2871710

PATIENT
  Age: 73 Year
  Sex: Female

DRUGS (30)
  1. ADO-TRASTUZUMAB EMTANSINE [Suspect]
     Active Substance: ADO-TRASTUZUMAB EMTANSINE
     Indication: Breast cancer
     Dosage: SUBSEQUENT THERAPIES ON 23/APR/2021, 14/MAY/2021, 04/JUN/2021, 25/JUN/2021, 23/JUL/2021.
     Route: 042
     Dates: start: 20210402
  2. DEXAMETHASONE SODIUM PHOSPHATE [Concomitant]
     Active Substance: DEXAMETHASONE SODIUM PHOSPHATE
     Route: 042
     Dates: start: 20210628, end: 20210706
  3. PHENIRAMINE [Concomitant]
     Active Substance: PHENIRAMINE
     Route: 042
     Dates: start: 20210402, end: 20210507
  4. DEXAMETHASONE [Concomitant]
     Active Substance: DEXAMETHASONE
     Route: 048
     Dates: start: 20210402, end: 20210625
  5. LACTULOSE [Concomitant]
     Active Substance: LACTULOSE
     Route: 048
     Dates: start: 20210713
  6. LASIX [Concomitant]
     Active Substance: FUROSEMIDE
     Route: 042
     Dates: start: 20210630, end: 20210630
  7. MAGNESIUM HYDROXIDE [Concomitant]
     Active Substance: MAGNESIUM HYDROXIDE
     Route: 048
     Dates: start: 20210711, end: 20210713
  8. MEGACE [Concomitant]
     Active Substance: MEGESTROL ACETATE
     Route: 048
     Dates: start: 20210415, end: 20210715
  9. MORPHINE SULFATE [Concomitant]
     Active Substance: MORPHINE SULFATE
     Indication: Osteopenia
     Route: 042
     Dates: start: 20210701, end: 20210714
  10. ANPLAG (SOUTH KOREA) [Concomitant]
     Route: 048
     Dates: start: 20210716
  11. METFORMIN HYDROCHLORIDE [Concomitant]
     Active Substance: METFORMIN HYDROCHLORIDE
     Indication: Diabetes mellitus
     Route: 048
     Dates: start: 20210716
  12. NEURONTIN [Concomitant]
     Active Substance: GABAPENTIN
     Route: 048
     Dates: start: 20210402, end: 20210603
  13. NEURONTIN [Concomitant]
     Active Substance: GABAPENTIN
     Route: 048
     Dates: start: 20210604, end: 20210715
  14. AMLODIPINE [Concomitant]
     Active Substance: AMLODIPINE BESYLATE
     Indication: Hypertension
     Dates: start: 20210712, end: 20210715
  15. ACETAMINOPHEN\TRAMADOL [Concomitant]
     Active Substance: ACETAMINOPHEN\TRAMADOL
     Route: 048
     Dates: start: 20210402
  16. QUETIAPINE FUMARATE [Concomitant]
     Active Substance: QUETIAPINE FUMARATE
     Indication: Insomnia
     Route: 048
     Dates: start: 20210707, end: 20210712
  17. EZETIMIBE\ROSUVASTATIN [Concomitant]
     Active Substance: EZETIMIBE\ROSUVASTATIN
     Indication: Hyperlipidaemia
     Dosage: 10/5 MG
     Route: 048
     Dates: start: 20210716
  18. LAFUTIDINE [Concomitant]
     Active Substance: LAFUTIDINE
     Route: 048
     Dates: start: 20210607, end: 20210609
  19. TRAMADOL HYDROCHLORIDE [Concomitant]
     Active Substance: TRAMADOL HYDROCHLORIDE
     Route: 042
     Dates: start: 20210607, end: 20210607
  20. TAZOPERAN [Concomitant]
     Indication: Cellulitis
     Route: 042
     Dates: start: 20210628, end: 20210711
  21. STILLEN 2X [Concomitant]
     Route: 048
     Dates: start: 20210722
  22. EZETIMIBE\ROSUVASTATIN [Concomitant]
     Active Substance: EZETIMIBE\ROSUVASTATIN
     Indication: Hyperlipidaemia
     Route: 048
     Dates: start: 20210716
  23. OROSARTAN [Concomitant]
     Indication: Hypertension
     Route: 048
     Dates: start: 20210716
  24. OROSARTAN [Concomitant]
     Route: 048
     Dates: start: 20210713, end: 20210715
  25. MORPHINE SULFATE [Concomitant]
     Active Substance: MORPHINE SULFATE
     Indication: Pain
     Route: 042
     Dates: start: 20210701, end: 20210712
  26. LASIX [Concomitant]
     Active Substance: FUROSEMIDE
     Route: 042
     Dates: start: 20210630, end: 20210630
  27. METFORMIN HYDROCHLORIDE [Concomitant]
     Active Substance: METFORMIN HYDROCHLORIDE
     Route: 048
     Dates: start: 20210716
  28. DICAMAX D PLUS [Concomitant]
     Indication: Osteopenia
     Dates: start: 20210723
  29. CEFACLOR [Concomitant]
     Active Substance: CEFACLOR
     Route: 048
     Dates: start: 20210722
  30. ANPLAG (SOUTH KOREA) [Concomitant]
     Indication: Diabetes mellitus
     Route: 048
     Dates: start: 20210716, end: 20210723

REACTIONS (7)
  - Paraesthesia [Recovering/Resolving]
  - Epistaxis [Recovered/Resolved]
  - Hemiparesis [Recovering/Resolving]
  - Dyspepsia [Recovering/Resolving]
  - Insomnia [Recovered/Resolved]
  - Constipation [Recovered/Resolved]
  - Cellulitis [Recovered/Resolved]

NARRATIVE: CASE EVENT DATE: 20210601
